FAERS Safety Report 6769181-9 (Version None)
Quarter: 2010Q2

REPORT INFORMATION
  Report Type: 
  Country: None (occurrence: None)
  Receive Date: 20100615
  Receipt Date: 20100603
  Transmission Date: 20101027
  Serious: Yes (Life-Threatening)
  Sender: FDA-Public Use
  Company Number: GB-JNJFOC-20100601648

PATIENT
  Age: 23 Year
  Weight: 55.7 kg

DRUGS (3)
  1. REMICADE [Suspect]
     Indication: CROHN'S DISEASE
     Route: 042
     Dates: start: 20100501, end: 20100525
  2. REMICADE [Suspect]
     Route: 042
     Dates: start: 20100501, end: 20100525
  3. AZATHIOPRINE [Concomitant]

REACTIONS (5)
  - ANAPHYLACTIC REACTION [None]
  - HEADACHE [None]
  - HYPERTENSION [None]
  - INFUSION RELATED REACTION [None]
  - TACHYCARDIA [None]
